FAERS Safety Report 6024678-4 (Version None)
Quarter: 2008Q4

REPORT INFORMATION
  Report Type: 
  Country: None (occurrence: None)
  Receive Date: 20081231
  Receipt Date: 20070501
  Transmission Date: 20090506
  Serious: Yes (Other)
  Sender: FDA-Public Use
  Company Number: US-BRISTOL-MYERS SQUIBB COMPANY-14432447

PATIENT
  Age: 54 Year
  Sex: Male
  Weight: 75 kg

DRUGS (21)
  1. CETUXIMAB [Suspect]
     Indication: NON-SMALL CELL LUNG CANCER
     Route: 042
     Dates: start: 20070222, end: 20070222
  2. PACLITAXEL [Suspect]
     Indication: NON-SMALL CELL LUNG CANCER
     Route: 042
     Dates: start: 20070222, end: 20070222
  3. CARBOPLATIN [Suspect]
     Indication: NON-SMALL CELL LUNG CANCER
     Route: 042
     Dates: start: 20070222, end: 20070222
  4. ACETAMINOPHEN [Concomitant]
     Indication: PAIN
     Dosage: ALSO TAKEN ON 06MAR07 AND 24FEB07
     Dates: start: 20070101
  5. ACETAMINOPHEN [Concomitant]
     Indication: PYREXIA
     Dosage: ALSO TAKEN ON 06MAR07 AND 24FEB07
     Dates: start: 20070101
  6. ACETAMINOPHEN [Concomitant]
     Indication: ARTHRALGIA
     Dosage: ALSO TAKEN ON 06MAR07 AND 24FEB07
     Dates: start: 20070101
  7. DEXAMETHASONE [Concomitant]
     Indication: PROPHYLAXIS
     Dosage: ALSO RECEIVED ON 22FEB07
     Route: 042
     Dates: start: 20070126
  8. DEXAMETHASONE [Concomitant]
     Indication: ARTHRALGIA
     Dosage: ALSO RECEIVED ON 22FEB07
     Route: 042
     Dates: start: 20070126
  9. DEXAMETHASONE [Concomitant]
     Indication: PREMEDICATION
     Dosage: ALSO RECEIVED ON 22FEB07
     Route: 042
     Dates: start: 20070126
  10. OXYCODONE [Concomitant]
     Indication: PAIN
     Route: 065
     Dates: start: 20070101
  11. COMPAZINE [Concomitant]
     Indication: NAUSEA
     Dosage: TAKEN EVERY 4 TO 6 HRS
     Dates: start: 20070224
  12. COMPAZINE [Concomitant]
     Indication: VOMITING
     Dosage: TAKEN EVERY 4 TO 6 HRS
     Dates: start: 20070224
  13. KYTRIL [Concomitant]
     Indication: NAUSEA
     Dosage: AS REQUIRED
  14. IMODIUM [Concomitant]
     Indication: DIARRHOEA
  15. ATIVAN [Concomitant]
     Indication: INSOMNIA
     Dosage: AT NIGHT
     Dates: start: 20070227
  16. VITAMIN B6 [Concomitant]
     Indication: NEUROPATHY PERIPHERAL
     Dosage: FORMULATION-TABS
     Dates: start: 20070227
  17. PREPARATION H [Concomitant]
     Route: 065
  18. ELIDEL [Concomitant]
     Indication: RASH
     Dates: start: 20070301
  19. AQUAPHOR [Concomitant]
     Indication: RASH
     Route: 065
     Dates: start: 20070228
  20. BENADRYL [Concomitant]
     Indication: PREMEDICATION
     Dates: start: 20070222
  21. ZANTAC [Concomitant]
     Indication: PREMEDICATION
     Dates: start: 20070222

REACTIONS (5)
  - HAEMORRHAGE [None]
  - METASTASES TO LIVER [None]
  - PATHOLOGICAL FRACTURE [None]
  - SYNOVIAL DISORDER [None]
  - TENDONITIS [None]
